FAERS Safety Report 9252348 (Version 2)
Quarter: 2013Q3

REPORT INFORMATION
  Report Type: Spontaneous
  Country: US (occurrence: US)
  Receive Date: 20130424
  Receipt Date: 20130823
  Transmission Date: 20140515
  Serious: Yes (Death, Hospitalization)
  Sender: FDA-Public Use
  Company Number: US-BAYER-2013-047933

PATIENT
  Age: 75 Year
  Sex: Female

DRUGS (8)
  1. BAYER GENUINE ASPIRIN ORIGINAL STRENGTH [Suspect]
     Dosage: UNK
     Dates: end: 20121106
  2. HUMALOG [Suspect]
     Indication: TYPE 2 DIABETES MELLITUS
     Dosage: 15 INTERNATIONAL UNIT
  3. SILDENAFIL [Concomitant]
     Dosage: UNK
     Dates: start: 20120226
  4. ALDOSTERONE [Concomitant]
  5. SAXAGLIPTIN [Concomitant]
  6. PLAVIX [Concomitant]
  7. INSULIN [Concomitant]
     Indication: DIABETES MELLITUS
     Dosage: 30 IU, UNK
     Dates: start: 20120423
  8. FUROSEMIDE [Concomitant]
     Dosage: UNK

REACTIONS (11)
  - General physical health deterioration [None]
  - Upper gastrointestinal haemorrhage [Fatal]
  - Fatigue [Fatal]
  - Haemoglobin decreased [Fatal]
  - Haematocrit decreased [Fatal]
  - Gastrointestinal haemorrhage [Recovered/Resolved]
  - Faeces discoloured [Recovered/Resolved]
  - Renal failure acute [Recovered/Resolved]
  - Gastrointestinal haemorrhage [Recovered/Resolved]
  - Cardiac failure congestive [Recovered/Resolved]
  - Renal failure acute [Recovered/Resolved]
